FAERS Safety Report 7055580-7 (Version None)
Quarter: 2010Q4

REPORT INFORMATION
  Report Type: 
  Country: None (occurrence: None)
  Receive Date: 20101021
  Receipt Date: 20101015
  Transmission Date: 20110411
  Serious: Yes (Other)
  Sender: FDA-Public Use
  Company Number: PHHO2010SE15900

PATIENT
  Sex: Female
  Weight: 86.1 kg

DRUGS (2)
  1. NO TREATMENT RECEIVED NOMED [Suspect]
  2. SANDIMMUNE [Suspect]
     Indication: RENAL TRANSPLANT
     Dosage: 125 MG, BID
     Dates: start: 20100408

REACTIONS (4)
  - FALL [None]
  - PELVIC FRACTURE [None]
  - RIB FRACTURE [None]
  - UPPER LIMB FRACTURE [None]
